FAERS Safety Report 6730927-7 (Version None)
Quarter: 2010Q2

REPORT INFORMATION
  Report Type: 
  Country: None (occurrence: None)
  Receive Date: 20100518
  Receipt Date: 20100514
  Transmission Date: 20101027
  Serious: Yes (Death, Other)
  Sender: FDA-Public Use
  Company Number: PHHY2010IE01065

PATIENT
  Sex: Female

DRUGS (11)
  1. CLOZARIL [Suspect]
     Indication: SCHIZOPHRENIA
     Dosage: UNK
     Dates: start: 20060214
  2. ATENOLOL [Concomitant]
     Dosage: 25 MG
     Route: 048
  3. PANTOPRAZOLE [Concomitant]
     Dosage: 40 MG
     Route: 048
  4. SOLIFENACIN [Concomitant]
     Dosage: 10 MG
  5. KWELLS [Concomitant]
  6. ERYTHROMYCIN [Concomitant]
     Dosage: QDS
     Dates: end: 20091230
  7. FLURAZEPAM [Concomitant]
     Dosage: 15 MG NOCTE
  8. PREDNISOLONE [Concomitant]
     Dosage: 20 MG DAILY
     Dates: start: 20091216, end: 20091221
  9. SALBUTAMOL [Concomitant]
  10. CANESTEN-HC [Concomitant]
     Dosage: UNK
     Route: 061
  11. KEFLEX [Concomitant]
     Dosage: 250 MG, QID
     Dates: start: 20091208, end: 20091215

REACTIONS (3)
  - ASPIRATION [None]
  - MALAISE [None]
  - RESPIRATORY TRACT INFECTION [None]
